FAERS Safety Report 9742484 (Version 1)
Quarter: 2013Q4

REPORT INFORMATION
  Report Type: Spontaneous
  Country: US (occurrence: US)
  Receive Date: 20131210
  Receipt Date: 20131210
  Transmission Date: 20140711
  Serious: Yes (Life-Threatening, Other)
  Sender: FDA-Public Use
  Company Number: US-DRREDDYS-USA/USA/13/0036196

PATIENT
  Sex: 0

DRUGS (1)
  1. TACROLIMUS CAPSULES [Suspect]
     Indication: IMMUNOSUPPRESSION
     Route: 065
     Dates: start: 20131028, end: 2013

REACTIONS (4)
  - Immunosuppressant drug level decreased [Unknown]
  - Transplant rejection [Unknown]
  - Drug ineffective [Unknown]
  - Product quality issue [Unknown]
